FAERS Safety Report 5530089-8 (Version None)
Quarter: 2007Q4

REPORT INFORMATION
  Report Type: 
  Country: None (occurrence: None)
  Receive Date: 20071119
  Receipt Date: 20070820
  Transmission Date: 20080405
  Serious: No
  Sender: FDA-Public Use
  Company Number: TPA2007A01779

PATIENT
  Age: 62 Year
  Sex: Male
  Weight: 99.7913 kg

DRUGS (10)
  1. ROZEREM [Suspect]
     Indication: INITIAL INSOMNIA
     Dosage: 8 MG, HS, PER ORAL
     Route: 048
     Dates: start: 20070815, end: 20070816
  2. PROTONIX [Concomitant]
  3. TOPROL-XL [Concomitant]
  4. PLAVIX [Concomitant]
  5. ASPIRIN [Concomitant]
  6. LIPITOR [Concomitant]
  7. LEXAPRO [Concomitant]
  8. ZETIA [Concomitant]
  9. AMBIEN [Concomitant]
  10. HYZAAR [Concomitant]

REACTIONS (5)
  - HEADACHE [None]
  - INITIAL INSOMNIA [None]
  - NAUSEA [None]
  - RESTLESSNESS [None]
  - VISUAL DISTURBANCE [None]
